FAERS Safety Report 4359030-0 (Version None)
Quarter: 2004Q2

REPORT INFORMATION
  Report Type: 
  Country: None (occurrence: None)
  Receive Date: 20040517
  Receipt Date: 20040512
  Transmission Date: 20050107
  Serious: Yes (Death, Hospitalization)
  Sender: FDA-Public Use
  Company Number: DEPFP-S-20040013

PATIENT
  Age: 49 Year
  Sex: Female

DRUGS (4)
  1. NAVELBINE [Suspect]
     Indication: BREAST CANCER METASTATIC
     Dosage: 30MG PER DAY
     Route: 042
     Dates: start: 20040212, end: 20040408
  2. NOVANTRONE [Concomitant]
     Dates: start: 20040318
  3. GRANISETRON [Concomitant]
     Dates: start: 20040408
  4. DICLOFENAC [Concomitant]

REACTIONS (4)
  - CARDIOVASCULAR DISORDER [None]
  - GENERAL PHYSICAL HEALTH DETERIORATION [None]
  - HEPATIC FAILURE [None]
  - ISCHAEMIC HEPATITIS [None]
